FAERS Safety Report 4771803-9 (Version None)
Quarter: 2005Q3

REPORT INFORMATION
  Report Type: 
  Country: None (occurrence: None)
  Receive Date: 20050916
  Receipt Date: 20050907
  Transmission Date: 20060218
  Serious: Yes (Death)
  Sender: FDA-Public Use
  Company Number: US-JNJFOC-20050901920

PATIENT
  Age: 44 Year
  Sex: Female

DRUGS (1)
  1. ACETAMINOPHEN/OXYCODONE [Suspect]
     Indication: DRUG USE FOR UNKNOWN INDICATION
     Route: 048

REACTIONS (10)
  - CLAVICLE FRACTURE [None]
  - DRUG ADMINISTRATION ERROR [None]
  - HEPATIC FAILURE [None]
  - HEPATITIS C POSITIVE [None]
  - HYPOTENSION [None]
  - LUNG INJURY [None]
  - MEDICATION ERROR [None]
  - PNEUMONIA [None]
  - RIB FRACTURE [None]
  - VICTIM OF HOMICIDE [None]
